FAERS Safety Report 24684745 (Version 1)
Quarter: 2024Q4

REPORT INFORMATION
  Report Type: Spontaneous
  Country: US (occurrence: US)
  Receive Date: 20241202
  Receipt Date: 20241202
  Transmission Date: 20250115
  Serious: No
  Sender: EPIC PHARM
  Company Number: US-EPICPHARMA-US-2024EPCSPO01483

PATIENT
  Sex: Female

DRUGS (6)
  1. ETHAMBUTOL HYDROCHLORIDE [Suspect]
     Active Substance: ETHAMBUTOL HYDROCHLORIDE
     Indication: Mycobacterium avium complex infection
     Route: 065
     Dates: start: 202204
  2. AZITHROMYCIN [Suspect]
     Active Substance: AZITHROMYCIN
     Indication: Mycobacterium avium complex infection
     Route: 065
     Dates: start: 202204
  3. RIFAMPIN [Suspect]
     Active Substance: RIFAMPIN
     Indication: Mycobacterium avium complex infection
     Route: 065
     Dates: start: 202207
  4. RIFABUTIN [Suspect]
     Active Substance: RIFABUTIN
     Indication: Mycobacterium avium complex infection
     Route: 065
  5. ARIKAYCE [Concomitant]
     Active Substance: AMIKACIN
     Indication: Product used for unknown indication
     Dates: start: 202209
  6. CLOFAZIMINE [Concomitant]
     Active Substance: CLOFAZIMINE
     Route: 065

REACTIONS (4)
  - Fatigue [Unknown]
  - Asthenia [Unknown]
  - Chills [Unknown]
  - Product use in unapproved indication [Unknown]
